FAERS Safety Report 5944787-5 (Version None)
Quarter: 2008Q4

REPORT INFORMATION
  Report Type: 
  Country: None (occurrence: None)
  Receive Date: 20081107
  Receipt Date: 20081030
  Transmission Date: 20090506
  Serious: Yes (Death, Hospitalization)
  Sender: FDA-Public Use
  Company Number: PH-BAXTER-2008BH011735

PATIENT
  Age: 93 Year
  Sex: Male

DRUGS (1)
  1. DIANEAL [Suspect]
     Indication: BLOOD CREATININE INCREASED
     Route: 033
     Dates: start: 20051103, end: 20081017

REACTIONS (2)
  - PNEUMONIA [None]
  - PULMONARY CONGESTION [None]
